FAERS Safety Report 16898083 (Version 14)
Quarter: 2020Q3

REPORT INFORMATION
  Report Type: Spontaneous
  Country: PT (occurrence: PT)
  Receive Date: 20191009
  Receipt Date: 20200710
  Transmission Date: 20201102
  Serious: Yes (Life-Threatening, Hospitalization, Disabling, Other)
  Sender: FDA-Public Use
  Company Number: PT-AUROBINDO-AUR-APL-2019-064777

PATIENT
  Age: 67 Year
  Sex: Female

DRUGS (11)
  1. SIMVASTATIN FILM?COATED TABLET [Interacting]
     Active Substance: SIMVASTATIN
     Indication: DYSLIPIDAEMIA
     Dosage: UNK,REINTRODUCED AND LATER SUSPENDED
     Route: 048
     Dates: start: 2017, end: 2018
  2. CIPROFLOXACIN. [Suspect]
     Active Substance: CIPROFLOXACIN
     Indication: MYCOBACTERIUM CHELONAE INFECTION
     Dosage: UNK
     Route: 065
     Dates: start: 201806, end: 2018
  3. CIPROFLOXACIN. [Suspect]
     Active Substance: CIPROFLOXACIN
     Indication: MYCOBACTERIAL INFECTION
  4. CLARITHROMYCIN. [Interacting]
     Active Substance: CLARITHROMYCIN
     Indication: MYCOBACTERIUM CHELONAE INFECTION
     Dosage: UNK, (IN JUNE )
     Route: 065
     Dates: start: 201806, end: 2018
  5. SIMVASTATIN FILM?COATED TABLET [Interacting]
     Active Substance: SIMVASTATIN
     Dosage: UNK
     Route: 065
     Dates: start: 2018
  6. CIPROFLOXACIN FILM?COATED TABLET [Suspect]
     Active Substance: CIPROFLOXACIN
     Indication: SKIN BACTERIAL INFECTION
     Dosage: UNK
     Route: 065
     Dates: start: 201806, end: 2018
  7. CIPROFLOXACIN FILM?COATED TABLET [Interacting]
     Active Substance: CIPROFLOXACIN
     Indication: MYCOBACTERIUM CHELONAE INFECTION
  8. CIPROFLOXACIN FILM?COATED TABLET [Interacting]
     Active Substance: CIPROFLOXACIN
     Indication: SKIN INFECTION
  9. CIPROFLOXACIN FILM?COATED TABLET [Interacting]
     Active Substance: CIPROFLOXACIN
     Indication: MYCOBACTERIAL INFECTION
  10. CLARITHROMYCIN. [Interacting]
     Active Substance: CLARITHROMYCIN
     Indication: MYCOBACTERIAL INFECTION
  11. CLARITHROMYCIN. [Interacting]
     Active Substance: CLARITHROMYCIN
     Indication: SKIN INFECTION

REACTIONS (18)
  - Myopathy [Recovered/Resolved]
  - Oedema peripheral [Recovering/Resolving]
  - Myositis [Unknown]
  - Myalgia [Recovered/Resolved]
  - Potentiating drug interaction [Recovered/Resolved]
  - Quadriparesis [Recovered/Resolved]
  - Acute kidney injury [Recovered/Resolved]
  - Rhabdomyolysis [Recovered/Resolved]
  - Mycobacterium chelonae infection [Not Recovered/Not Resolved]
  - Muscle strength abnormal [Recovered/Resolved]
  - Nausea [Recovered/Resolved]
  - Diarrhoea [Recovered/Resolved]
  - Muscular weakness [Recovering/Resolving]
  - Skin bacterial infection [Not Recovered/Not Resolved]
  - Off label use [Unknown]
  - Labelled drug-drug interaction medication error [Unknown]
  - Hepatocellular injury [Recovered/Resolved]
  - Drug interaction [Recovered/Resolved]

NARRATIVE: CASE EVENT DATE: 2018
